FAERS Safety Report 6655297-4 (Version None)
Quarter: 2010Q1

REPORT INFORMATION
  Report Type: 
  Country: None (occurrence: None)
  Receive Date: 20100324
  Receipt Date: 20100311
  Transmission Date: 20100710
  Serious: Yes (Congenital Anomaly, Other)
  Sender: FDA-Public Use
  Company Number: TPH-00226

PATIENT
  Age: 3 Year
  Sex: Female

DRUGS (1)
  1. TRIQUILAR [Suspect]
     Indication: CONTRACEPTION
     Dosage: TRANSPLACENTAL
     Route: 064

REACTIONS (5)
  - CAESAREAN SECTION [None]
  - EYE DISORDER [None]
  - FOOT DEFORMITY [None]
  - MATERNAL DRUGS AFFECTING FOETUS [None]
  - UNEQUAL LIMB LENGTH [None]
